FAERS Safety Report 5839397-4 (Version None)
Quarter: 2008Q3

REPORT INFORMATION
  Report Type: 
  Country: None (occurrence: None)
  Receive Date: 20080806
  Receipt Date: 20080725
  Transmission Date: 20090109
  Serious: Yes (Death, Hospitalization, Other)
  Sender: FDA-Public Use
  Company Number: 2008JP003464

PATIENT
  Age: 65 Year
  Sex: Female

DRUGS (4)
  1. TACROLIMUS [Suspect]
     Indication: LIVER TRANSPLANT
     Dosage: 5 MG, UNKNOWN/D, 2 MG, UNKNOWN/D
  2. MYCOPHENOLATE MOFETIL [Suspect]
     Indication: LIVER TRANSPLANT
     Dosage: 250 MG, UNKNOWN/D
  3. METHOTREXATE FORMULATION UNKNOWN [Concomitant]
  4. MERCAPTOPURINE (MERCAPTOPURINE) FORMULATION [Concomitant]

REACTIONS (3)
  - ACUTE MEGAKARYOCYTIC LEUKAEMIA [None]
  - ACUTE MYELOID LEUKAEMIA [None]
  - SEPSIS [None]
